FAERS Safety Report 16747437 (Version 3)
Quarter: 2019Q3

REPORT INFORMATION
  Report Type: Spontaneous
  Country: JP (occurrence: JP)
  Receive Date: 20190827
  Receipt Date: 20190919
  Transmission Date: 20191005
  Serious: Yes (Hospitalization, Other)
  Sender: FDA-Public Use
  Company Number: JP-ASTRAZENECA-2019SF03386

PATIENT
  Age: 66 Year
  Sex: Male
  Weight: 56 kg

DRUGS (12)
  1. ISOSORBIDE DINITRATE. [Concomitant]
     Active Substance: ISOSORBIDE DINITRATE
     Indication: ANGINA PECTORIS
     Route: 048
     Dates: start: 201611
  2. MICAMLO [Concomitant]
     Active Substance: AMLODIPINE BESYLATE\TELMISARTAN
     Indication: CEREBRAL INFARCTION
     Dosage: AP, DOSE UNKNOWN, EVERY DAY
     Route: 048
  3. PATELL [Concomitant]
     Indication: BACK PAIN
     Dosage: 20 MG , ONCE OR TWICE/DAY
     Route: 062
  4. NEXIUM [Suspect]
     Active Substance: ESOMEPRAZOLE MAGNESIUM
     Indication: GASTROOESOPHAGEAL REFLUX DISEASE
     Route: 048
     Dates: start: 201611, end: 20190315
  5. TELMISARTAN. [Concomitant]
     Active Substance: TELMISARTAN
     Route: 048
     Dates: start: 2016
  6. SIGMART [Concomitant]
     Active Substance: NICORANDIL
     Indication: ANGINA PECTORIS
     Route: 048
     Dates: start: 201611
  7. MAINTATE [Concomitant]
     Active Substance: BISOPROLOL FUMARATE
     Indication: ANGINA PECTORIS
     Route: 048
     Dates: start: 201611
  8. AMLODIPINE [Concomitant]
     Active Substance: AMLODIPINE BESYLATE
     Route: 048
     Dates: start: 2016
  9. CLOPIDOGREL [Concomitant]
     Active Substance: CLOPIDOGREL BISULFATE
     Indication: CEREBRAL INFARCTION
     Route: 048
     Dates: start: 201611
  10. LAC-B [Concomitant]
     Active Substance: BIFIDOBACTERIUM SPP.
     Indication: AORTIC ANASTOMOSIS
     Route: 048
  11. DILTIAZEM HYDROCHLORIDE R [Concomitant]
     Active Substance: DILTIAZEM HYDROCHLORIDE
     Indication: ANGINA PECTORIS
     Route: 048
     Dates: start: 201611
  12. PATELL [Concomitant]
     Indication: BACK PAIN
     Dosage: 40 MG, ONCE OR TWICE/DAY, L
     Route: 062

REACTIONS (13)
  - Seizure [Recovered/Resolved]
  - Gastroenteritis [Recovered/Resolved]
  - Defaecation disorder [Unknown]
  - Insomnia [Unknown]
  - Epilepsy [Unknown]
  - Hypocalcaemia [Recovered/Resolved]
  - Hypokalaemia [Recovered/Resolved]
  - Diarrhoea [Recovered/Resolved]
  - Spinal disorder [Unknown]
  - Altered state of consciousness [Recovered/Resolved]
  - Hypomagnesaemia [Recovered/Resolved]
  - Enterocolitis [Unknown]
  - Muscular weakness [Unknown]

NARRATIVE: CASE EVENT DATE: 201811
